FAERS Safety Report 9264420 (Version 1)
Quarter: 2013Q2

REPORT INFORMATION
  Report Type: Spontaneous
  Country: US (occurrence: US)
  Receive Date: 20130430
  Receipt Date: 20130430
  Transmission Date: 20140414
  Serious: No
  Sender: FDA-Public Use
  Company Number: US-009507513-1304USA016335

PATIENT
  Sex: Female

DRUGS (1)
  1. ZOCOR [Suspect]

REACTIONS (3)
  - Pain [Unknown]
  - Muscular weakness [Unknown]
  - Dizziness [Unknown]
